FAERS Safety Report 9021275 (Version 1)
Quarter: 2013Q1

REPORT INFORMATION
  Report Type: Spontaneous
  Country: US (occurrence: US)
  Receive Date: 20130119
  Receipt Date: 20130119
  Transmission Date: 20140127
  Serious: No
  Sender: FDA-Public Use
  Company Number: US-ALLERGAN-1203226US

PATIENT
  Age: 31 Year
  Sex: Female
  Weight: 80.27 kg

DRUGS (5)
  1. BOTOX? [Suspect]
     Indication: MUSCLE SPASMS
     Dosage: 400 UNITS, SINGLE
     Route: 030
     Dates: start: 20120116, end: 20120116
  2. BOTOX? [Suspect]
     Dosage: 400 UNITS, SINGLE
     Route: 030
     Dates: start: 20120221, end: 20120221
  3. LAMICTAL [Concomitant]
     Indication: PRODUCT USED FOR UNKNOWN INDICATION
     Dosage: 200 MG, BID
     Route: 048
  4. VICODIN [Concomitant]
     Indication: PAIN
     Dosage: 5 MG, QID
     Route: 048
  5. ZANAFLEX [Concomitant]
     Indication: PAIN
     Dosage: 4 MG, QHS
     Route: 048

REACTIONS (7)
  - Allodynia [Not Recovered/Not Resolved]
  - Back disorder [Unknown]
  - Skin disorder [Unknown]
  - Back pain [Not Recovered/Not Resolved]
  - Muscular weakness [Not Recovered/Not Resolved]
  - Pain in extremity [Not Recovered/Not Resolved]
  - Muscle atrophy [Not Recovered/Not Resolved]
